FAERS Safety Report 19097681 (Version 1)
Quarter: 2021Q2

REPORT INFORMATION
  Report Type: Spontaneous
  Country: US (occurrence: US)
  Receive Date: 20210406
  Receipt Date: 20210406
  Transmission Date: 20210717
  Serious: Yes (Hospitalization)
  Sender: FDA-Public Use
  Company Number: None

PATIENT
  Age: 81 Year
  Sex: Female
  Weight: 63.5 kg

DRUGS (7)
  1. SOLTOLOL [Concomitant]
  2. FUROSEMIDE. [Concomitant]
     Active Substance: FUROSEMIDE
  3. MINOXIDIL 2.5MG TAB [Suspect]
     Active Substance: MINOXIDIL
     Indication: HYPERTENSION
     Dosage: ?          QUANTITY:1 DF DOSAGE FORM;?
     Route: 048
     Dates: start: 20200313, end: 20201001
  4. PROCARDIA [Concomitant]
     Active Substance: NIFEDIPINE
  5. DOXAZOSIN [Suspect]
     Active Substance: DOXAZOSIN MESYLATE
  6. ELIQUIS [Concomitant]
     Active Substance: APIXABAN
  7. KCL [Concomitant]
     Active Substance: POTASSIUM CHLORIDE

REACTIONS (9)
  - Pulmonary oedema [None]
  - Migraine [None]
  - Atrial fibrillation [None]
  - Dyspnoea [None]
  - Vision blurred [None]
  - Mydriasis [None]
  - Peripheral swelling [None]
  - Abdominal distension [None]
  - Rectal haemorrhage [None]

NARRATIVE: CASE EVENT DATE: 20201014
